FAERS Safety Report 5713627-1 (Version None)
Quarter: 2008Q2

REPORT INFORMATION
  Report Type: 
  Country: None (occurrence: None)
  Receive Date: 20080422
  Receipt Date: 20080415
  Transmission Date: 20081010
  Serious: Yes (Hospitalization)
  Sender: FDA-Public Use
  Company Number: JP-MERCK-0804USA03927

PATIENT
  Age: 67 Year
  Sex: Female

DRUGS (1)
  1. ZETIA [Suspect]
     Indication: HYPERCHOLESTEROLAEMIA
     Route: 048
     Dates: start: 20070628, end: 20071027

REACTIONS (1)
  - HEPATIC FUNCTION ABNORMAL [None]
